FAERS Safety Report 24060767 (Version 1)
Quarter: 2024Q3

REPORT INFORMATION
  Report Type: Spontaneous
  Country: US (occurrence: US)
  Receive Date: 20240708
  Receipt Date: 20240708
  Transmission Date: 20241016
  Serious: Yes (Other)
  Sender: GALDERMA
  Company Number: US-GALDERMA-US2024010805

PATIENT

DRUGS (3)
  1. DOXYCYCLINE [Suspect]
     Active Substance: DOXYCYCLINE\DOXYCYCLINE HYCLATE
     Indication: Vibrio vulnificus infection
     Dosage: 1 DOSAGE FORM
     Route: 065
  2. VANCOMYCIN [Concomitant]
     Active Substance: VANCOMYCIN
     Indication: Vibrio vulnificus infection
     Dosage: 1 DOSAGE FORM
     Route: 065
  3. CEFIDEROCOL [Concomitant]
     Active Substance: CEFIDEROCOL
     Indication: Vibrio vulnificus infection
     Dosage: 1 DOSAGE FORM
     Route: 065

REACTIONS (4)
  - Acute kidney injury [Unknown]
  - Liver injury [Unknown]
  - Coagulopathy [Unknown]
  - Intentional product use issue [Recovered/Resolved]
